FAERS Safety Report 16538461 (Version 1)
Quarter: 2019Q3

REPORT INFORMATION
  Report Type: Spontaneous
  Country: US (occurrence: US)
  Receive Date: 20190708
  Receipt Date: 20190708
  Transmission Date: 20191004
  Serious: Yes (Other)
  Sender: FDA-Public Use
  Company Number: US-DRREDDYS-USA/USA/19/0111457

PATIENT
  Age: 71 Year
  Sex: Female

DRUGS (3)
  1. PRAMIPEXOLE. [Suspect]
     Active Substance: PRAMIPEXOLE
     Route: 065
  2. PRAMIPEXOLE. [Suspect]
     Active Substance: PRAMIPEXOLE
     Route: 065
  3. PRAMIPEXOLE. [Suspect]
     Active Substance: PRAMIPEXOLE
     Indication: PARKINSON^S DISEASE
     Route: 065

REACTIONS (17)
  - Frustration tolerance decreased [Recovering/Resolving]
  - Vomiting [Recovering/Resolving]
  - Depressive symptom [Recovering/Resolving]
  - Panic attack [Recovering/Resolving]
  - Crying [Recovering/Resolving]
  - Dysphoria [Recovering/Resolving]
  - Weight decreased [Recovering/Resolving]
  - Decreased appetite [Recovering/Resolving]
  - Drug withdrawal syndrome [Recovering/Resolving]
  - Hyperventilation [Recovering/Resolving]
  - Anxiety [Recovering/Resolving]
  - Orthostatic hypotension [Recovering/Resolving]
  - Dizziness [Recovering/Resolving]
  - Impulse-control disorder [Recovered/Resolved]
  - Nausea [Recovering/Resolving]
  - Fatigue [Recovering/Resolving]
  - Social avoidant behaviour [Recovering/Resolving]
